FAERS Safety Report 8312239-3 (Version None)
Quarter: 2012Q2

REPORT INFORMATION
  Report Type: 
  Country: None (occurrence: None)
  Receive Date: 20120425
  Receipt Date: 20120416
  Transmission Date: 20120825
  Serious: Yes (Hospitalization)
  Sender: FDA-Public Use
  Company Number: FR-FRI-1000030047

PATIENT
  Sex: Female

DRUGS (11)
  1. CITALOPRAM HYDROBROMIDE [Suspect]
     Dosage: 20 MG
     Dates: end: 20110301
  2. ESCITALOPRAM [Suspect]
     Dosage: 10 MG
     Route: 048
     Dates: start: 20100730
  3. MYAMBUTOL [Concomitant]
     Dosage: 800 MG
     Route: 048
     Dates: start: 20100730
  4. VITAMIN B1 B6 [Concomitant]
     Dosage: 3 DF
     Route: 048
     Dates: start: 20100730
  5. RAMIPRIL [Concomitant]
     Dosage: 1.25 MG
     Route: 048
     Dates: start: 20100730
  6. ATARAX [Concomitant]
     Dosage: 3 DF
     Route: 048
     Dates: start: 20100730
  7. RIMIFON [Concomitant]
     Dosage: 150 MG
     Route: 048
     Dates: start: 20100730
  8. RIFADIN [Concomitant]
     Dosage: 150 MG
     Route: 048
  9. FORADIL [Concomitant]
     Dosage: 2 DF
     Route: 048
     Dates: start: 20100730
  10. RIFADIN [Concomitant]
     Dosage: 300 MG
     Route: 048
     Dates: start: 20100730
  11. PYRAZINAMIDE [Concomitant]
     Dosage: 1000 MG
     Route: 048
     Dates: start: 20100730

REACTIONS (2)
  - HYPONATRAEMIA [None]
  - INAPPROPRIATE ANTIDIURETIC HORMONE SECRETION [None]
